FAERS Safety Report 9515110 (Version 1)
Quarter: 2013Q3

REPORT INFORMATION
  Report Type: Spontaneous
  Country: NO (occurrence: NO)
  Receive Date: 20130911
  Receipt Date: 20130911
  Transmission Date: 20140515
  Serious: Yes (Hospitalization, Other)
  Sender: FDA-Public Use
  Company Number: NO-ELI_LILLY_AND_COMPANY-NO201309001855

PATIENT
  Age: 38 Year
  Sex: 0

DRUGS (10)
  1. ZYPREXA [Suspect]
     Indication: SCHIZOPHRENIA, PARANOID TYPE
     Dosage: 5 MG, UNK
     Dates: start: 20001127
  2. ZYPREXA [Suspect]
     Dosage: 10 MG, EACH MORNING
     Dates: start: 20130731
  3. ZYPREXA [Suspect]
     Dosage: 10 MG, EACH EVENING
     Dates: start: 20130731
  4. ZYPREXA [Suspect]
     Dosage: 10 MG, PRN
  5. ZYPREXA [Suspect]
     Dosage: 20 MG, QD
  6. TRILAFON /00023401/ [Suspect]
     Indication: SCHIZOPHRENIA, PARANOID TYPE
     Dosage: 8 MG, TID
     Dates: start: 20001206
  7. HALDOL DECANOATE [Concomitant]
     Indication: SCHIZOPHRENIA, PARANOID TYPE
     Dosage: 40 MG, BID
  8. AKINETON                           /00079501/ [Concomitant]
     Indication: SCHIZOPHRENIA, PARANOID TYPE
     Dosage: 2 MG, UNK
  9. LOSARTAN [Concomitant]
     Indication: HYPERTENSION
     Dosage: 50 MG, QD
     Dates: start: 20130320
  10. OMEGA 3 FISH OIL [Concomitant]

REACTIONS (19)
  - Convulsion [Unknown]
  - Psychotic disorder [Unknown]
  - Atrioventricular block first degree [Unknown]
  - Cardiovascular disorder [Unknown]
  - Exposure via father [Recovered/Resolved]
  - Insomnia [Unknown]
  - Gastric disorder [Unknown]
  - Mobility decreased [Unknown]
  - Nasal congestion [Unknown]
  - Food craving [Unknown]
  - Wound [Unknown]
  - Wound [Unknown]
  - Haemorrhoids [Unknown]
  - Injury [Unknown]
  - Somnolence [Unknown]
  - Weight increased [Unknown]
  - Increased appetite [Unknown]
  - Prescribed overdose [Unknown]
  - Drug ineffective [Unknown]
